FAERS Safety Report 7159048-9 (Version None)
Quarter: 2010Q4

REPORT INFORMATION
  Report Type: 
  Country: None (occurrence: None)
  Receive Date: 20101214
  Receipt Date: 20101201
  Transmission Date: 20110411
  Serious: Yes (Hospitalization)
  Sender: FDA-Public Use
  Company Number: DE-ELI_LILLY_AND_COMPANY-DE201010003060

PATIENT
  Age: 19 Year
  Sex: Male

DRUGS (1)
  1. ZYPREXA [Suspect]
     Indication: AGGRESSION
     Dosage: 5 MG, UNK
     Route: 048
     Dates: start: 20100501

REACTIONS (5)
  - HOSPITALISATION [None]
  - OFF LABEL USE [None]
  - PAIN [None]
  - SKIN DISCOLOURATION [None]
  - WEIGHT INCREASED [None]
